FAERS Safety Report 12207338 (Version 1)
Quarter: 2016Q1

REPORT INFORMATION
  Report Type: Spontaneous
  Country: US (occurrence: None)
  Receive Date: 20160323
  Receipt Date: 20160323
  Transmission Date: 20160526
  Serious: Yes (Hospitalization)
  Sender: FDA-Public Use
  Company Number: None

PATIENT
  Age: 24 Year
  Sex: Male

DRUGS (3)
  1. RITONAVIR. [Concomitant]
     Active Substance: RITONAVIR
  2. DARUNAVIR [Suspect]
     Active Substance: DARUNAVIR
     Indication: HIV INFECTION
     Route: 048
     Dates: end: 20160201
  3. EMTRICITABINE + TENOFOVIR [Concomitant]
     Active Substance: EMTRICITABINE\TENOFOVIR

REACTIONS (2)
  - Rhabdomyolysis [None]
  - Refusal of treatment by patient [None]

NARRATIVE: CASE EVENT DATE: 20160128
